FAERS Safety Report 6086717-4 (Version None)
Quarter: 2009Q1

REPORT INFORMATION
  Report Type: 
  Country: None (occurrence: None)
  Receive Date: 20090223
  Receipt Date: 20090216
  Transmission Date: 20090719
  Serious: Yes (Other)
  Sender: FDA-Public Use
  Company Number: PHHY2009FR05478

PATIENT
  Sex: Female

DRUGS (3)
  1. ZOMETA [Suspect]
     Indication: METASTASES TO BONE
     Dosage: UNK
     Route: 042
     Dates: start: 20071101, end: 20080701
  2. CLASTOBAN [Suspect]
     Indication: METASTASES TO BONE
     Dosage: 2 DF DAILY
     Route: 048
     Dates: start: 20080701, end: 20090201
  3. ARIMIDEX [Concomitant]

REACTIONS (2)
  - DENTAL CARE [None]
  - OSTEONECROSIS [None]
